FAERS Safety Report 7026851-5 (Version None)
Quarter: 2010Q4

REPORT INFORMATION
  Report Type: 
  Country: None (occurrence: None)
  Receive Date: 20101004
  Receipt Date: 20100930
  Transmission Date: 20110411
  Serious: Yes (Hospitalization)
  Sender: FDA-Public Use
  Company Number: A0790992A

PATIENT
  Age: 55 Year
  Sex: Male

DRUGS (2)
  1. AVANDIA [Suspect]
     Indication: TYPE 2 DIABETES MELLITUS
     Dosage: 2MG TWICE PER DAY
     Route: 048
     Dates: start: 20060601, end: 20070801
  2. AVANDAMET [Suspect]
     Indication: TYPE 2 DIABETES MELLITUS
     Route: 048
     Dates: start: 20040701, end: 20041101

REACTIONS (3)
  - INJURY [None]
  - MYOCARDIAL INFARCTION [None]
  - OEDEMA [None]
